FAERS Safety Report 6080304-X (Version None)
Quarter: 2009Q1

REPORT INFORMATION
  Report Type: 
  Country: None (occurrence: None)
  Receive Date: 20090217
  Receipt Date: 20090205
  Transmission Date: 20090719
  Serious: Yes (Disabling)
  Sender: FDA-Public Use
  Company Number: AU-PFIZER INC-2008098742

PATIENT

DRUGS (2)
  1. CHAMPIX [Suspect]
     Indication: SMOKING CESSATION THERAPY
     Dosage: 1 MG, 2X/DAY
     Route: 048
     Dates: start: 20080929, end: 20081105
  2. ENDEP [Concomitant]
     Indication: AFFECTIVE DISORDER
     Dosage: 50 MG
     Route: 048

REACTIONS (6)
  - AGGRESSION [None]
  - ANGER [None]
  - ANOREXIA [None]
  - DEPRESSION [None]
  - INSOMNIA [None]
  - SOMNOLENCE [None]
